FAERS Safety Report 23984373 (Version 2)
Quarter: 2024Q2

REPORT INFORMATION
  Report Type: Spontaneous
  Country: NL (occurrence: NL)
  Receive Date: 20240618
  Receipt Date: 20240624
  Transmission Date: 20240716
  Serious: Yes (Death, Life-Threatening, Other)
  Sender: FDA-Public Use
  Company Number: NL-MLMSERVICE-20240410-PI007104-00108-2

PATIENT
  Age: 54 Year
  Sex: Male
  Weight: 95 kg

DRUGS (4)
  1. CLOZAPINE [Suspect]
     Active Substance: CLOZAPINE
     Indication: Schizophrenia
     Dosage: 150 MILLIGRAM, ONCE A DAY
     Route: 048
     Dates: start: 202211
  2. VALPROIC ACID [Concomitant]
     Active Substance: VALPROIC ACID
     Indication: Schizophrenia
     Dosage: 1500 MILLIGRAM, ONCE A DAY
     Route: 065
     Dates: start: 2022, end: 2023
  3. AMISULPRIDE [Concomitant]
     Active Substance: AMISULPRIDE
     Indication: Schizophrenia
     Dosage: 800 MILLIGRAM, ONCE A DAY
     Route: 065
     Dates: start: 2022, end: 2023
  4. OLANZAPINE [Concomitant]
     Active Substance: OLANZAPINE
     Indication: Schizophrenia
     Dosage: 30 MILLIGRAM, ONCE A DAY
     Route: 065
     Dates: start: 2022, end: 2023

REACTIONS (4)
  - Sepsis [Fatal]
  - B-cell lymphoma [Fatal]
  - Blood disorder [Fatal]
  - Pancytopenia [Fatal]

NARRATIVE: CASE EVENT DATE: 20230101
